FAERS Safety Report 5127232-1 (Version None)
Quarter: 2006Q4

REPORT INFORMATION
  Report Type: 
  Country: None (occurrence: None)
  Receive Date: 20061010
  Receipt Date: 20060928
  Transmission Date: 20070319
  Serious: Yes (Other)
  Sender: FDA-Public Use
  Company Number: 236048K06USA

PATIENT
  Age: 57 Year
  Sex: Female

DRUGS (8)
  1. REBIF [Suspect]
     Indication: MULTIPLE SCLEROSIS
     Dosage: 22 MCG, 3 IN 1 WEEKS, SUBCUTANEOUS
     Route: 058
     Dates: start: 20050110
  2. CARDIZEM [Concomitant]
  3. VASOTEC [Concomitant]
  4. ALDACTONE [Concomitant]
  5. ESTRACE [Concomitant]
  6. ZETIA [Concomitant]
  7. NEXIUM (ESOMEPRAZOLE MAGENSIUM) [Concomitant]
  8. PROZAC [Concomitant]

REACTIONS (5)
  - HEADACHE [None]
  - HEPATIC NEOPLASM [None]
  - HYPOTENSION [None]
  - LUNG NEOPLASM [None]
  - PAIN [None]
